FAERS Safety Report 19167474 (Version 1)
Quarter: 2021Q2

REPORT INFORMATION
  Report Type: Spontaneous
  Country: DE (occurrence: DE)
  Receive Date: 20210422
  Receipt Date: 20210422
  Transmission Date: 20210717
  Serious: Yes (Other)
  Sender: FDA-Public Use
  Company Number: DE-TEVA-2021-DE-1903444

PATIENT
  Age: 64 Year
  Sex: Male

DRUGS (1)
  1. RAMIPRIL ABZ 2,5 MG TABLETTEN [Suspect]
     Active Substance: RAMIPRIL
     Route: 048
     Dates: start: 202104

REACTIONS (4)
  - Sinusitis [Not Recovered/Not Resolved]
  - Cough [Not Recovered/Not Resolved]
  - Asthma [Not Recovered/Not Resolved]
  - Bronchitis [Not Recovered/Not Resolved]

NARRATIVE: CASE EVENT DATE: 202104
